FAERS Safety Report 5953543-3 (Version None)
Quarter: 2008Q4

REPORT INFORMATION
  Report Type: 
  Country: None (occurrence: None)
  Receive Date: 20081114
  Receipt Date: 20081106
  Transmission Date: 20090506
  Serious: Yes (Other)
  Sender: FDA-Public Use
  Company Number: US-JNJFOC-20081102337

PATIENT
  Sex: Female

DRUGS (4)
  1. EXTRA STRENGTH TYLENOL [Suspect]
     Route: 048
  2. EXTRA STRENGTH TYLENOL [Suspect]
     Indication: SCAR PAIN
     Dosage: 1000 MG -1500 MG 1-2 TIMES DAILY
     Route: 048
  3. KEFLEX [Suspect]
     Indication: DRUG USE FOR UNKNOWN INDICATION
  4. TOPROL-XL [Concomitant]

REACTIONS (3)
  - DRY MOUTH [None]
  - DYSPNOEA [None]
  - WHEEZING [None]
